FAERS Safety Report 4452046-5 (Version None)
Quarter: 2004Q3

REPORT INFORMATION
  Report Type: 
  Country: None (occurrence: None)
  Receive Date: 20040915
  Receipt Date: 20040915
  Transmission Date: 20050211
  Serious: Yes (Hospitalization)
  Sender: FDA-Public Use
  Company Number: None

PATIENT
  Age: 54 Year
  Sex: Female
  Weight: 119.3 kg

DRUGS (8)
  1. ACTOS [Suspect]
     Indication: DIABETES MELLITUS
     Dosage: 30 MG PO QD
     Route: 048
  2. VIOXX [Suspect]
     Indication: ARTHRALGIA
     Dosage: ({2 MOS)
     Dates: end: 20040619
  3. OMEPRAZOLE [Concomitant]
  4. MONOPRIL [Concomitant]
  5. ZOCOR [Concomitant]
  6. SYNTHROID [Concomitant]
  7. CORTISONE [Concomitant]
  8. HUMALOG [Concomitant]

REACTIONS (5)
  - DYSPNOEA [None]
  - DYSPNOEA EXERTIONAL [None]
  - FLUID RETENTION [None]
  - PICKWICKIAN SYNDROME [None]
  - WEIGHT INCREASED [None]
